FAERS Safety Report 5297277-X (Version None)
Quarter: 2007Q2

REPORT INFORMATION
  Report Type: 
  Country: None (occurrence: None)
  Receive Date: 20070416
  Receipt Date: 20070406
  Transmission Date: 20071010
  Serious: No
  Sender: FDA-Public Use
  Company Number: JP-ELI_LILLY_AND_COMPANY-JP200704002213

PATIENT
  Age: 21 Year
  Sex: Male

DRUGS (4)
  1. ZYPREXA [Suspect]
     Dosage: 15 MG, UNK
     Route: 048
  2. IMPROMEN /00568801/ [Concomitant]
     Route: 048
  3. AKINETON [Concomitant]
     Route: 048
  4. NELBON [Concomitant]

REACTIONS (1)
  - EPISTAXIS [None]
